FAERS Safety Report 7918544-4 (Version None)
Quarter: 2011Q4

REPORT INFORMATION
  Report Type: 
  Country: None (occurrence: None)
  Receive Date: 20111116
  Receipt Date: 20111101
  Transmission Date: 20120403
  Serious: Yes (Death)
  Sender: FDA-Public Use
  Company Number: US-WATSON-2011-17925

PATIENT
  Age: 77 Year
  Sex: Female

DRUGS (3)
  1. CYCLOPHOSPHAMIDE [Suspect]
     Indication: LYMPHOMA
     Dosage: UNKNOWN
     Route: 065
  2. PREDNISONE TAB [Suspect]
     Indication: LYMPHOMA
     Dosage: UNKNOWN
     Route: 065
  3. VINCRISTINE [Suspect]
     Indication: LYMPHOMA
     Dosage: UNKNOWN
     Route: 065

REACTIONS (4)
  - NOCARDIOSIS [None]
  - EYE INFECTION BACTERIAL [None]
  - LUNG ABSCESS [None]
  - BRAIN ABSCESS [None]
